FAERS Safety Report 7202218-1 (Version None)
Quarter: 2010Q4

REPORT INFORMATION
  Report Type: 
  Country: None (occurrence: None)
  Receive Date: 20101220
  Receipt Date: 20101206
  Transmission Date: 20110411
  Serious: Yes (Other)
  Sender: FDA-Public Use
  Company Number: GER/USA/10/0016581

PATIENT
  Age: 16 Year
  Sex: Female

DRUGS (5)
  1. IBUPROFEN [Suspect]
     Indication: PRODUCT USED FOR UNKNOWN INDICATION
     Dosage: 200 MG, 37 IN TOTAL, ORAL
     Route: 048
     Dates: start: 20070901, end: 20070901
  2. QUETIAPINE FUMARATE [Suspect]
     Indication: INSOMNIA
     Dosage: 25 MG, AT BEDTIME
     Dates: start: 20070901
  3. SERTRALINE HYDROCHLORIDE [Suspect]
     Indication: MAJOR DEPRESSION
     Dosage: 50 MG, INCREASED TO 100MG DAILY,
     Dates: start: 20070901, end: 20080601
  4. BUSPIRONE HCL [Suspect]
     Indication: ANXIETY
     Dosage: 5 MG, 2 IN 1 D,
     Dates: start: 20070901, end: 20080601
  5. VALPROIC ACID [Concomitant]

REACTIONS (14)
  - ANXIETY [None]
  - CONFUSIONAL STATE [None]
  - DISORIENTATION [None]
  - HALLUCINATION, AUDITORY [None]
  - INSOMNIA [None]
  - INTENTIONAL OVERDOSE [None]
  - MANIA [None]
  - PARANOIA [None]
  - PSYCHOTIC DISORDER [None]
  - SUICIDAL IDEATION [None]
  - SUICIDE ATTEMPT [None]
  - SUSPICIOUSNESS [None]
  - THOUGHT BLOCKING [None]
  - THROMBOCYTOPENIA [None]
